FAERS Safety Report 7606579-0 (Version None)
Quarter: 2011Q3

REPORT INFORMATION
  Report Type: 
  Country: None (occurrence: None)
  Receive Date: 20110712
  Receipt Date: 20110712
  Transmission Date: 20111222
  Serious: Yes (Other)
  Sender: FDA-Public Use
  Company Number: None

PATIENT
  Sex: Female

DRUGS (1)
  1. VENLAFAXINE [Suspect]
     Indication: DEPRESSION
     Dosage: EFFEXOR XR 150MG QD PO
     Route: 048
     Dates: start: 20110621

REACTIONS (4)
  - PRODUCT SUBSTITUTION ISSUE [None]
  - DRUG WITHDRAWAL SYNDROME [None]
  - CRYING [None]
  - DEPRESSED MOOD [None]
